FAERS Safety Report 4527133-3 (Version None)
Quarter: 2004Q4

REPORT INFORMATION
  Report Type: 
  Country: None (occurrence: None)
  Receive Date: 20041202
  Receipt Date: 20040605
  Transmission Date: 20050328
  Serious: No
  Sender: FDA-Public Use
  Company Number: 20040600317

PATIENT
  Age: 42 Year
  Sex: Male

DRUGS (1)
  1. PHENERGAN [Suspect]
     Indication: NAUSEA
     Dosage: 50 MG ONCE IM
     Route: 030
     Dates: start: 20040423, end: 20040423

REACTIONS (2)
  - INJECTION SITE PAIN [None]
  - NECROSIS [None]
